FAERS Safety Report 8271458-5 (Version None)
Quarter: 2012Q2

REPORT INFORMATION
  Report Type: 
  Country: None (occurrence: None)
  Receive Date: 20120410
  Receipt Date: 20120402
  Transmission Date: 20120825
  Serious: Yes (Hospitalization)
  Sender: FDA-Public Use
  Company Number: FR-FRI-1000029623

PATIENT
  Sex: Female

DRUGS (3)
  1. FOSFOMYCIN [Suspect]
     Indication: URINARY TRACT INFECTION
     Route: 048
     Dates: start: 20120211, end: 20120211
  2. BACTRIM [Suspect]
     Indication: URINARY TRACT INFECTION
     Dosage: 3 DF
     Route: 048
     Dates: start: 20120213, end: 20120221
  3. SPASFON [Suspect]
     Indication: URINARY TRACT INFECTION
     Dosage: 3 DF
     Route: 048
     Dates: start: 20120213, end: 20120219

REACTIONS (2)
  - RASH MORBILLIFORM [None]
  - HYPERTHERMIA [None]
